FAERS Safety Report 9509454 (Version 2)
Quarter: 2013Q3

REPORT INFORMATION
  Report Type: Spontaneous
  Country: US (occurrence: US)
  Receive Date: 20130909
  Receipt Date: 20130909
  Transmission Date: 20140515
  Serious: No
  Sender: FDA-Public Use
  Company Number: US-BRISTOL-MYERS SQUIBB COMPANY-17268061

PATIENT
  Sex: Female

DRUGS (2)
  1. ABILIFY [Suspect]
     Dates: start: 201212, end: 20121228
  2. ZYPREXA [Concomitant]

REACTIONS (3)
  - Drug ineffective [Unknown]
  - Abnormal behaviour [Unknown]
  - Daydreaming [Unknown]
